FAERS Safety Report 17277247 (Version 4)
Quarter: 2021Q2

REPORT INFORMATION
  Report Type: Report from Study
  Country: ES (occurrence: ES)
  Receive Date: 20200116
  Receipt Date: 20210629
  Transmission Date: 20210716
  Serious: Yes (Hospitalization)
  Sender: FDA-Public Use
  Company Number: ES-JNJFOC-20200116288

PATIENT
  Age: 70 Year
  Sex: Female
  Weight: 84.7 kg

DRUGS (19)
  1. JNJ?63723283 [Suspect]
     Active Substance: CETRELIMAB
     Indication: TRANSITIONAL CELL CARCINOMA
     Route: 042
     Dates: start: 20190923, end: 20191230
  2. PARACETAMOL [Concomitant]
     Active Substance: ACETAMINOPHEN
     Indication: PELVIC PAIN
     Dates: start: 201909
  3. LORAZEPAM. [Concomitant]
     Active Substance: LORAZEPAM
     Indication: ANXIETY
     Dates: start: 201901
  4. MYCOSTATIN [Concomitant]
     Active Substance: NYSTATIN
     Indication: MUCOSAL INFLAMMATION
     Dates: start: 20191214
  5. SEGURIL [Concomitant]
     Active Substance: FUROSEMIDE
     Indication: PROPHYLAXIS
     Dates: start: 201907
  6. DIPRODERM                          /00008504/ [Concomitant]
     Indication: DIARRHOEA
     Dates: start: 20191214
  7. PARACETAMOL [Concomitant]
     Active Substance: ACETAMINOPHEN
     Indication: ABDOMINAL PAIN
     Dates: start: 20191214
  8. ALPROZAM [Concomitant]
     Indication: ANXIETY
     Dates: start: 20191214
  9. NEXIUM [Concomitant]
     Active Substance: ESOMEPRAZOLE MAGNESIUM
     Indication: GASTRIC DISORDER
     Dates: start: 20191214
  10. PARACETAMOL [Concomitant]
     Active Substance: ACETAMINOPHEN
     Dates: start: 20200109
  11. CAPTOPRIL. [Concomitant]
     Active Substance: CAPTOPRIL
     Indication: DIARRHOEA
     Dates: start: 20191214
  12. FORTASEC                           /00384301/ [Concomitant]
     Active Substance: LOPERAMIDE
     Indication: DIARRHOEA
     Dates: start: 20190928
  13. ULTRA LEVURA                       /00243701/ [Concomitant]
     Active Substance: YEAST
     Indication: DIARRHOEA
     Dates: start: 20191214
  14. ERDAFITINIB. [Suspect]
     Active Substance: ERDAFITINIB
     Indication: TRANSITIONAL CELL CARCINOMA
     Route: 048
     Dates: start: 20190923, end: 20200108
  15. LINEZOLID. [Concomitant]
     Active Substance: LINEZOLID
     Dates: start: 20191214
  16. OMEPRAZOLE. [Concomitant]
     Active Substance: OMEPRAZOLE
     Indication: GASTROINTESTINAL DISORDER THERAPY
     Dates: start: 20191118
  17. IPRATROPIUM BROMIDE. [Concomitant]
     Active Substance: IPRATROPIUM BROMIDE
     Indication: DIARRHOEA
     Dates: start: 20191214
  18. LOSARTAN POTASSIUM. [Concomitant]
     Active Substance: LOSARTAN POTASSIUM
     Indication: HYPERTENSION
     Dates: start: 20191204
  19. LINEZOLID. [Concomitant]
     Active Substance: LINEZOLID
     Indication: PNEUMONIA
     Dates: start: 20191213

REACTIONS (1)
  - Diarrhoea [Recovered/Resolved]

NARRATIVE: CASE EVENT DATE: 20200109
